FAERS Safety Report 13433070 (Version 2)
Quarter: 2019Q4

REPORT INFORMATION
  Report Type: Spontaneous
  Country: US (occurrence: US)
  Receive Date: 20170412
  Receipt Date: 20191218
  Transmission Date: 20200122
  Serious: Yes (Other)
  Sender: FDA-Public Use
  Company Number: US-PFIZER INC-2017160930

PATIENT
  Age: 65 Year
  Sex: Male

DRUGS (9)
  1. FLOMAX [Concomitant]
     Active Substance: TAMSULOSIN HYDROCHLORIDE
     Indication: BENIGN PROSTATIC HYPERPLASIA
     Dosage: 0.4 MG, 1X/DAY
     Dates: start: 20070830
  2. VIAGRA [Suspect]
     Active Substance: SILDENAFIL CITRATE
     Dosage: UNK
     Route: 048
     Dates: start: 20121008, end: 201211
  3. VIAGRA [Suspect]
     Active Substance: SILDENAFIL CITRATE
     Dosage: 50 MG (SEVERAL TIMES PER MONTH)
     Route: 048
     Dates: start: 20121002, end: 201211
  4. VITAMIN D [Concomitant]
     Active Substance: VITAMIN D NOS
     Indication: PROPHYLAXIS
     Dosage: UNK
     Dates: start: 2014
  5. TYLENOL [Concomitant]
     Active Substance: ACETAMINOPHEN
     Indication: HEADACHE
     Dosage: UNK
     Dates: start: 2014
  6. PROSCAR [Concomitant]
     Active Substance: FINASTERIDE
     Indication: BENIGN PROSTATIC HYPERPLASIA
     Dosage: 5 MG, 1X/DAY
     Dates: start: 20070830
  7. VIAGRA [Suspect]
     Active Substance: SILDENAFIL CITRATE
     Indication: ERECTILE DYSFUNCTION
     Dosage: UNK
     Route: 048
     Dates: start: 200005, end: 200707
  8. VIAGRA [Suspect]
     Active Substance: SILDENAFIL CITRATE
     Dosage: 50 MG (SEVERAL TIMES PER MONTH)
     Route: 048
     Dates: start: 20000503, end: 20070629
  9. TAMSULOSIN HCL [Concomitant]
     Active Substance: TAMSULOSIN HYDROCHLORIDE
     Indication: BENIGN PROSTATIC HYPERPLASIA
     Dosage: 5 MG, 1X/DAY
     Dates: start: 20101104

REACTIONS (4)
  - Malignant melanoma stage IV [Unknown]
  - Emotional distress [Unknown]
  - Anxiety [Unknown]
  - Malignant melanoma [Unknown]

NARRATIVE: CASE EVENT DATE: 20060313
